FAERS Safety Report 7049161-9 (Version None)
Quarter: 2010Q4

REPORT INFORMATION
  Report Type: 
  Country: None (occurrence: None)
  Receive Date: 20101018
  Receipt Date: 20101005
  Transmission Date: 20110411
  Serious: Yes (Hospitalization, Other)
  Sender: FDA-Public Use
  Company Number: PHHY2010JP44371

PATIENT
  Sex: Male
  Weight: 58 kg

DRUGS (29)
  1. RASILEZ [Suspect]
     Indication: HYPERTENSION
     Dosage: 150 MG, DAILY
     Route: 048
     Dates: start: 20100623
  2. AMLODIN OD [Concomitant]
     Dosage: 10 MG, UNK
     Route: 048
     Dates: start: 20100622, end: 20100812
  3. AVAPRO [Concomitant]
     Dosage: 200 MG, UNK
     Route: 048
     Dates: start: 20100620, end: 20100812
  4. DOXAZOSIN MESYLATE [Concomitant]
     Dosage: 8 MG, UNK
     Route: 048
     Dates: start: 20100625, end: 20100702
  5. PLETAL [Concomitant]
     Dosage: 1 G, UNK
     Route: 048
     Dates: start: 20100626, end: 20100812
  6. TENORMIN [Concomitant]
     Dosage: 50 MG, UNK
     Route: 048
     Dates: start: 20100623, end: 20100812
  7. EXCEGRAN [Concomitant]
     Dosage: 1 G, UNK
     Route: 048
     Dates: start: 20100625, end: 20100812
  8. DEPAS [Concomitant]
     Dosage: UNK
  9. LOXOPROFEN SODIUM [Concomitant]
     Dosage: UNK
  10. TAKEPRON [Concomitant]
     Dosage: UNK
  11. URSODIOL [Concomitant]
     Dosage: UNK
  12. GASPORT [Concomitant]
     Dosage: 40 MG, UNK
     Route: 048
     Dates: start: 20100622, end: 20100704
  13. PLAVIX [Concomitant]
     Dosage: 75 MG, UNK
     Route: 048
     Dates: start: 20100622, end: 20100622
  14. ADALAT [Concomitant]
     Dosage: 60 MG, UNK
     Route: 048
     Dates: start: 20100628, end: 20100808
  15. RADICUT [Concomitant]
     Dosage: 200 ML, UNK
     Route: 041
     Dates: start: 20100619, end: 20100622
  16. SOLITA T [Concomitant]
     Dosage: 200 ML, UNK
     Route: 041
     Dates: start: 20100619, end: 20100622
  17. OZAGREL NA [Concomitant]
     Dosage: 160 MG, UNK
     Route: 041
     Dates: start: 20100619, end: 20100622
  18. HEPARIN [Concomitant]
     Dosage: 500 IU, UNK
     Route: 041
     Dates: start: 20100620, end: 20100621
  19. PALUX [Concomitant]
     Dosage: 10 UG, UNK
     Route: 041
     Dates: start: 20100621, end: 20100622
  20. PROPOFOL [Concomitant]
     Dosage: UNK
     Route: 041
     Dates: start: 20100622, end: 20100628
  21. MUSCULAX [Concomitant]
     Dosage: UNK
     Route: 041
     Dates: start: 20100622, end: 20100628
  22. GLYCEOL [Concomitant]
     Dosage: 600 ML, UNK
     Route: 041
     Dates: start: 20100623, end: 20100712
  23. CEFAZOLIN SODIUM [Concomitant]
     Dosage: UNK
     Route: 041
     Dates: start: 20100623, end: 20100629
  24. ATROPINE [Concomitant]
     Dosage: 0.5 MG, UNK
     Route: 041
     Dates: start: 20100623, end: 20100623
  25. ATARAX [Concomitant]
     Dosage: 25 MG, UNK
     Route: 041
     Dates: start: 20100623, end: 20100623
  26. FASUDIL HYDROCHLORIDE [Concomitant]
     Dosage: 30 MG, UNK
     Route: 041
     Dates: start: 20100623, end: 20100706
  27. PROSTARMON F [Concomitant]
     Dosage: 1 MG, UNK
     Route: 041
     Dates: start: 20100624, end: 20100629
  28. PANTOL [Concomitant]
     Dosage: 500 MG, UNK
     Route: 041
     Dates: start: 20100624, end: 20100629
  29. ALEVIATIN [Concomitant]
     Dosage: 250 MG, UNK
     Route: 041
     Dates: start: 20100626, end: 20100626

REACTIONS (5)
  - BLOOD PRESSURE INCREASED [None]
  - GAMMA-GLUTAMYLTRANSFERASE INCREASED [None]
  - HEPATIC FUNCTION ABNORMAL [None]
  - MALAISE [None]
  - YELLOW SKIN [None]
